FAERS Safety Report 4997160-0 (Version None)
Quarter: 2006Q2

REPORT INFORMATION
  Report Type: 
  Country: None (occurrence: None)
  Receive Date: 20060508
  Receipt Date: 20060508
  Transmission Date: 20061013
  Serious: No
  Sender: FDA-Public Use
  Company Number: None

PATIENT
  Sex: Male
  Weight: 77.1115 kg

DRUGS (1)
  1. FLEET PHOSPHO-SODA [Suspect]

REACTIONS (4)
  - COLONIC OBSTRUCTION [None]
  - GASTRIC DISORDER [None]
  - NEPHROLITHIASIS [None]
  - RENAL FAILURE [None]
